FAERS Safety Report 5849441-6 (Version None)
Quarter: 2008Q3

REPORT INFORMATION
  Report Type: 
  Country: None (occurrence: None)
  Receive Date: 20080819
  Receipt Date: 20080812
  Transmission Date: 20090109
  Serious: Yes (Hospitalization)
  Sender: FDA-Public Use
  Company Number: JP-ASTRAZENECA-2008AP06239

PATIENT
  Age: 15867 Day
  Sex: Male

DRUGS (12)
  1. FOSCAVIR [Suspect]
     Indication: PNEUMONIA CYTOMEGALOVIRAL
     Route: 041
     Dates: start: 20071026, end: 20071115
  2. FOSCAVIR [Suspect]
     Route: 041
     Dates: start: 20071217, end: 20071230
  3. ZITHROMAX [Concomitant]
     Indication: OPPORTUNISTIC INFECTION PROPHYLAXIS
     Route: 048
     Dates: start: 20070921, end: 20071108
  4. MEBRON [Concomitant]
     Indication: CEREBRAL TOXOPLASMOSIS
     Route: 048
     Dates: start: 20071020, end: 20080331
  5. CLARITHROMYCIN [Concomitant]
     Indication: MYCOBACTERIUM AVIUM COMPLEX INFECTION
     Route: 048
     Dates: start: 20071108, end: 20080331
  6. ETHAMBUTOL HCL [Concomitant]
     Indication: MYCOBACTERIUM AVIUM COMPLEX INFECTION
     Route: 048
     Dates: start: 20071108, end: 20080331
  7. CRAVIT [Concomitant]
     Indication: MYCOBACTERIUM AVIUM COMPLEX INFECTION
     Route: 048
     Dates: start: 20071108, end: 20080331
  8. BIOFERMIN [Concomitant]
     Indication: DIARRHOEA
     Route: 048
     Dates: start: 20071130, end: 20080331
  9. NORVIR [Concomitant]
     Indication: HIV INFECTION
     Dosage: NUMBER OF SEPARATE DOSAGES UNKNOWN
     Route: 048
     Dates: start: 20071210, end: 20080331
  10. REYATAZ [Concomitant]
     Indication: HIV INFECTION
     Dosage: NUMBER OF SEPARATE DOSAGES UNKNOWN
     Route: 048
     Dates: start: 20071210, end: 20080331
  11. TRUVADA [Concomitant]
     Indication: HIV INFECTION
     Dosage: NUMBER OF SEPARATE DOSAGES UNKNOWN
     Route: 048
     Dates: start: 20071210, end: 20080331
  12. MUCOSTA [Concomitant]
     Indication: GASTRITIS
     Route: 048
     Dates: start: 20071215, end: 20080331

REACTIONS (1)
  - PLATELET COUNT DECREASED [None]
